FAERS Safety Report 4276226-7 (Version None)
Quarter: 2004Q1

REPORT INFORMATION
  Report Type: 
  Country: None (occurrence: None)
  Receive Date: 20040121
  Receipt Date: 20030812
  Transmission Date: 20041129
  Serious: No
  Sender: FDA-Public Use
  Company Number: US-GLAXOSMITHKLINE-A0420831A

PATIENT
  Sex: Female

DRUGS (3)
  1. ZIAGEN [Suspect]
     Indication: HIV INFECTION
     Dosage: 300MG TWICE PER DAY
     Route: 048
     Dates: start: 20030708
  2. EPIVIR [Concomitant]
  3. KALETRA [Concomitant]

REACTIONS (2)
  - LIBIDO DECREASED [None]
  - VULVOVAGINAL DRYNESS [None]
